FAERS Safety Report 24377123 (Version 2)
Quarter: 2024Q4

REPORT INFORMATION
  Report Type: Spontaneous
  Country: PL (occurrence: PL)
  Receive Date: 20240930
  Receipt Date: 20241003
  Transmission Date: 20250115
  Serious: Yes (Other)
  Sender: AMGEN
  Company Number: PL-AMGEN-POLSP2024191121

PATIENT
  Age: 66 Year
  Sex: Female

DRUGS (4)
  1. NPLATE [Suspect]
     Active Substance: ROMIPLOSTIM
     Indication: Immune thrombocytopenia
     Dosage: 1 MICROGRAM
     Route: 065
  2. NPLATE [Suspect]
     Active Substance: ROMIPLOSTIM
     Dosage: 2 MICROGRAM
     Route: 065
  3. NPLATE [Suspect]
     Active Substance: ROMIPLOSTIM
     Dosage: 3 MICROGRAM
     Route: 065
  4. NPLATE [Suspect]
     Active Substance: ROMIPLOSTIM
     Dosage: 4 MICROGRAM
     Route: 065

REACTIONS (2)
  - Gastric cancer [Unknown]
  - Platelet count abnormal [Unknown]
